FAERS Safety Report 15950647 (Version 1)
Quarter: 2019Q1

REPORT INFORMATION
  Report Type: Spontaneous
  Country: IT (occurrence: IT)
  Receive Date: 20190211
  Receipt Date: 20190211
  Transmission Date: 20190417
  Serious: Yes (Other)
  Sender: FDA-Public Use
  Company Number: IT-TEVA-2019-IT-1009374

PATIENT
  Age: 65 Year
  Sex: Female
  Weight: 59 kg

DRUGS (4)
  1. CISPLATIN. [Suspect]
     Active Substance: CISPLATIN
     Indication: BLADDER TRANSITIONAL CELL CARCINOMA
     Route: 042
     Dates: start: 20180416, end: 20180618
  2. PARVATI [Concomitant]
  3. TENORMIN [Concomitant]
     Active Substance: ATENOLOL
  4. GEMCITABINE [Concomitant]
     Active Substance: GEMCITABINE\GEMCITABINE HYDROCHLORIDE
     Indication: BLADDER TRANSITIONAL CELL CARCINOMA
     Route: 042
     Dates: start: 20180416, end: 20180618

REACTIONS (2)
  - Tinnitus [Not Recovered/Not Resolved]
  - Neurosensory hypoacusis [Not Recovered/Not Resolved]

NARRATIVE: CASE EVENT DATE: 20180522
